FAERS Safety Report 8226030-X (Version None)
Quarter: 2012Q1

REPORT INFORMATION
  Report Type: 
  Country: None (occurrence: None)
  Receive Date: 20120321
  Receipt Date: 20120316
  Transmission Date: 20120608
  Serious: No
  Sender: FDA-Public Use
  Company Number: US-PFIZER INC-2012070090

PATIENT
  Sex: Female
  Weight: 122 kg

DRUGS (8)
  1. MOTRIN [Suspect]
     Dosage: UNK
  2. CYMBALTA [Suspect]
     Dosage: UNK
  3. LYRICA [Suspect]
     Indication: FIBROMYALGIA
     Dosage: 75 MG, 2X/DAY
     Route: 048
     Dates: start: 20110901
  4. NAPROXEN (ALEVE) [Suspect]
     Dosage: UNK
  5. DETROL LA [Concomitant]
     Indication: INCONTINENCE
     Dosage: 4 MG, DAILY
  6. LYRICA [Suspect]
     Indication: BACK PAIN
  7. ATENOLOL [Concomitant]
     Indication: HYPERTENSION
     Dosage: 50 MG, 2X/DAY
  8. TYLENOL [Suspect]
     Dosage: UNK

REACTIONS (2)
  - DRUG INEFFECTIVE [None]
  - DYSPHEMIA [None]
